FAERS Safety Report 7495713-1 (Version None)
Quarter: 2011Q2

REPORT INFORMATION
  Report Type: 
  Country: None (occurrence: None)
  Receive Date: 20110523
  Receipt Date: 20110513
  Transmission Date: 20111010
  Serious: Yes (Hospitalization)
  Sender: FDA-Public Use
  Company Number: US-US-EMD SERONO, INC.-7053871

PATIENT
  Sex: Female
  Weight: 95 kg

DRUGS (10)
  1. ENABLIX [Concomitant]
     Indication: NEUROGENIC BLADDER
  2. BEE POLLEN [Concomitant]
  3. REBIF [Suspect]
     Dates: start: 20110326, end: 20110326
  4. OTHER UNSPECIFIED MEDICATION [Concomitant]
  5. PHOSPHATIDYLSERINE [Concomitant]
  6. REBIF [Suspect]
     Indication: RELAPSING-REMITTING MULTIPLE SCLEROSIS
     Dates: start: 20030101, end: 20040101
  7. ARIMIDEX [Concomitant]
     Indication: BREAST CANCER
  8. REBIF [Suspect]
     Route: 058
     Dates: start: 20110429
  9. FLAX SEED OIL [Concomitant]
  10. ACAI BERRY [Concomitant]

REACTIONS (3)
  - SEPSIS [None]
  - INCISION SITE CELLULITIS [None]
  - INJECTION SITE ERYTHEMA [None]
